FAERS Safety Report 17908192 (Version 4)
Quarter: 2020Q2

REPORT INFORMATION
  Report Type: Report from Study
  Country: None (occurrence: NL)
  Receive Date: 20200617
  Receipt Date: 20200624
  Transmission Date: 20200714
  Serious: Yes (Death, Life-Threatening, Other)
  Sender: FDA-Public Use
  Company Number: NL-ABBVIE-20K-114-3445632-00

PATIENT
  Age: 83 Year
  Sex: Male

DRUGS (6)
  1. MADOPAR HBS [Concomitant]
     Active Substance: BENSERAZIDE HYDROCHLORIDE\LEVODOPA
     Indication: PRODUCT USED FOR UNKNOWN INDICATION
  2. LEVODOPA [Concomitant]
     Active Substance: LEVODOPA
     Indication: PRODUCT USED FOR UNKNOWN INDICATION
  3. DUODOPA [Suspect]
     Active Substance: CARBIDOPA\LEVODOPA
     Dosage: STRENGTH: 20 MG/ML 5 MG/ML
     Route: 050
  4. MACROGOL [Concomitant]
     Active Substance: POLYETHYLENE GLYCOLS
     Indication: ABNORMAL FAECES
  5. ZINC. [Concomitant]
     Active Substance: ZINC
     Indication: STOMA SITE REACTION
  6. DUODOPA [Suspect]
     Active Substance: CARBIDOPA\LEVODOPA
     Indication: PARKINSON^S DISEASE
     Dosage: MD 7.0 CD 2.1 ED 0.7 CDN 1.0
     Route: 050
     Dates: start: 20150930

REACTIONS (7)
  - Device dislocation [Unknown]
  - Aphasia [Not Recovered/Not Resolved]
  - Dysphagia [Unknown]
  - Cerebrovascular accident [Fatal]
  - Terminal state [Fatal]
  - Parkinson^s disease [Fatal]
  - Cerebral infarction [Not Recovered/Not Resolved]

NARRATIVE: CASE EVENT DATE: 20200515
